FAERS Safety Report 5879889-5 (Version None)
Quarter: 2008Q3

REPORT INFORMATION
  Report Type: 
  Country: None (occurrence: None)
  Receive Date: 20080911
  Receipt Date: 20080911
  Transmission Date: 20090109
  Serious: Yes (Other)
  Sender: FDA-Public Use
  Company Number: None

PATIENT
  Sex: Female
  Weight: 70.3075 kg

DRUGS (7)
  1. FLUOXETINE [Suspect]
     Indication: BULIMIA NERVOSA
     Dosage: 20 MG ONCE QD PO
     Route: 048
     Dates: start: 20040601, end: 20040901
  2. FLUOXETINE [Suspect]
     Indication: DEPRESSION
     Dosage: 20 MG ONCE QD PO
     Route: 048
     Dates: start: 20040601, end: 20040901
  3. FLUOXETINE [Suspect]
     Indication: BULIMIA NERVOSA
     Dosage: 20 MG ONCE QD PO
     Route: 048
     Dates: start: 20080601
  4. FLUOXETINE [Suspect]
     Indication: DEPRESSION
     Dosage: 20 MG ONCE QD PO
     Route: 048
     Dates: start: 20080601
  5. TEGRETOL-XR [Concomitant]
  6. GEODON [Concomitant]
  7. LITHIUM CARBONATE [Concomitant]

REACTIONS (7)
  - ARTERIAL INJURY [None]
  - IMPULSE-CONTROL DISORDER [None]
  - INTENTIONAL SELF-INJURY [None]
  - MORBID THOUGHTS [None]
  - SELF-INJURIOUS IDEATION [None]
  - THINKING ABNORMAL [None]
  - WOUND [None]
